FAERS Safety Report 8101231-X (Version None)
Quarter: 2012Q1

REPORT INFORMATION
  Report Type: 
  Country: None (occurrence: None)
  Receive Date: 20120129
  Receipt Date: 20110919
  Transmission Date: 20120608
  Serious: No
  Sender: FDA-Public Use
  Company Number: US-ABBOTT-11P-163-0856144-00

PATIENT
  Sex: Female

DRUGS (3)
  1. HUMIRA [Suspect]
     Indication: CROHN'S DISEASE
     Dosage: INJECT 4 PENS UNDER SKIN DAY 1
     Route: 050
     Dates: start: 20110831, end: 20110831
  2. HUMIRA [Suspect]
     Route: 050
  3. HUMIRA [Suspect]
     Dosage: 2 PENS DAY 15
     Route: 050

REACTIONS (2)
  - BLOOD IRON DECREASED [None]
  - FATIGUE [None]
